FAERS Safety Report 8300832-3 (Version None)
Quarter: 2012Q2

REPORT INFORMATION
  Report Type: 
  Country: None (occurrence: None)
  Receive Date: 20120420
  Receipt Date: 20120410
  Transmission Date: 20120825
  Serious: Yes (Hospitalization)
  Sender: FDA-Public Use
  Company Number: DE-NOVOPROD-349300

PATIENT
  Age: 59 Year
  Sex: Male

DRUGS (1)
  1. NORDITROPIN [Suspect]
     Indication: PRODUCT USED FOR UNKNOWN INDICATION
     Dosage: UNK
     Dates: start: 20060405

REACTIONS (1)
  - PITUITARY TUMOUR REMOVAL [None]
